FAERS Safety Report 16352391 (Version 1)
Quarter: 2019Q2

REPORT INFORMATION
  Report Type: Spontaneous
  Country: TR (occurrence: TR)
  Receive Date: 20190524
  Receipt Date: 20190524
  Transmission Date: 20190711
  Serious: Yes (Other)
  Sender: FDA-Public Use
  Company Number: TR-TEVA-2019-TR-1055556

PATIENT
  Age: 66 Year
  Sex: Male

DRUGS (2)
  1. FLUDARABINE [Suspect]
     Active Substance: FLUDARABINE PHOSPHATE
     Indication: CHRONIC LYMPHOCYTIC LEUKAEMIA STAGE 2
     Route: 065
     Dates: start: 2010
  2. CYCLOPHOSPHAMIDE. [Suspect]
     Active Substance: CYCLOPHOSPHAMIDE
     Indication: CHRONIC LYMPHOCYTIC LEUKAEMIA STAGE 2
     Route: 065
     Dates: start: 2010

REACTIONS (1)
  - Kaposi^s sarcoma [Unknown]

NARRATIVE: CASE EVENT DATE: 201303
